FAERS Safety Report 17116154 (Version 4)
Quarter: 2019Q4

REPORT INFORMATION
  Report Type: Report from Study
  Country: GB (occurrence: GB)
  Receive Date: 20191205
  Receipt Date: 20191219
  Transmission Date: 20200122
  Serious: Yes (Death, Hospitalization)
  Sender: FDA-Public Use
  Company Number: GB-EISAI MEDICAL RESEARCH-EC-2019-066481

PATIENT
  Age: 75 Year
  Sex: Male
  Weight: 73.6 kg

DRUGS (15)
  1. PEMBROLIZUMAB. [Suspect]
     Active Substance: PEMBROLIZUMAB
     Indication: COLORECTAL CANCER
     Route: 041
     Dates: start: 20191015, end: 20191105
  2. QUININE SULFATE. [Concomitant]
     Active Substance: QUININE SULFATE
     Dates: start: 201601
  3. LENVATINIB [Suspect]
     Active Substance: LENVATINIB
     Indication: COLORECTAL CANCER
     Route: 048
     Dates: start: 20191015, end: 20191125
  4. RAMIPRIL. [Concomitant]
     Active Substance: RAMIPRIL
     Dates: start: 20191015
  5. FLUVASTATIN SODIUM. [Concomitant]
     Active Substance: FLUVASTATIN SODIUM
     Dates: start: 199901
  6. CROMOLYN SODIUM. [Concomitant]
     Active Substance: CROMOLYN SODIUM
     Dates: start: 197901
  7. NAFRONYL OXALATE [Concomitant]
     Active Substance: NAFRONYL OXALATE
     Dates: start: 201902
  8. CYANOCOBALAMIN. [Concomitant]
     Active Substance: CYANOCOBALAMIN
     Dates: start: 201904
  9. PEMBROLIZUMAB. [Suspect]
     Active Substance: PEMBROLIZUMAB
     Route: 041
     Dates: start: 20191126, end: 20191126
  10. CETRIZINE [Concomitant]
     Active Substance: CETIRIZINE HYDROCHLORIDE
     Dates: start: 197901
  11. LYCOPENE [Concomitant]
     Active Substance: LYCOPENE
     Dates: start: 201701
  12. LAXIDO [Concomitant]
     Active Substance: POLYETHYLENE GLYCOL 3350\POTASSIUM CHLORIDE\SODIUM BICARBONATE\SODIUM CHLORIDE
     Dates: start: 201904
  13. UBIDECARENONE [Concomitant]
     Active Substance: UBIDECARENONE
     Dates: start: 201201
  14. DIPROBASE [Concomitant]
     Active Substance: CHLOROCRESOL
     Dates: start: 200901
  15. ALBUTEROL. [Concomitant]
     Active Substance: ALBUTEROL
     Dates: start: 197901

REACTIONS (1)
  - Intestinal perforation [Fatal]

NARRATIVE: CASE EVENT DATE: 20191128
